FAERS Safety Report 12001322 (Version 1)
Quarter: 2016Q1

REPORT INFORMATION
  Report Type: Other
  Country: JP (occurrence: JP)
  Receive Date: 20160204
  Receipt Date: 20160204
  Transmission Date: 20160526
  Serious: Yes (Hospitalization, Other)
  Sender: FDA-Public Use
  Company Number: CO-ZN-JP-2015-066; JPN2015JPN148381

PATIENT
  Sex: Male

DRUGS (6)
  1. FLUOROURACIL. [Suspect]
     Active Substance: FLUOROURACIL
  2. CALCIUM LEVOFOLINATE [Suspect]
     Active Substance: LEVOLEUCOVORIN CALCIUM
  3. OXALIPLATIN. [Suspect]
     Active Substance: OXALIPLATIN
  4. AVASTIN [Suspect]
     Active Substance: BEVACIZUMAB
  5. CHLORPHENIRAMINE. [Concomitant]
     Active Substance: CHLORPHENIRAMINE
  6. ZANTAC [Suspect]
     Active Substance: RANITIDINE HYDROCHLORIDE
     Indication: PREMEDICATION
     Route: 040

REACTIONS (9)
  - Haemorrhage subcutaneous [Unknown]
  - Mouth haemorrhage [Unknown]
  - Thrombocytopenia [Unknown]
  - Internal haemorrhage [Unknown]
  - Haemorrhagic diathesis [Recovered/Resolved]
  - Rash [Unknown]
  - Haematuria [Unknown]
  - Melaena [Unknown]
  - Platelet count decreased [Recovered/Resolved]
